FAERS Safety Report 10765828 (Version 1)
Quarter: 2015Q1

REPORT INFORMATION
  Report Type: Spontaneous
  Country: US (occurrence: US)
  Receive Date: 20150205
  Receipt Date: 20150205
  Transmission Date: 20150721
  Serious: Yes (Death)
  Sender: FDA-Public Use
  Company Number: US-PERRIGO-15US001296

PATIENT
  Age: 29 Year
  Sex: Female

DRUGS (6)
  1. ALPRAZOLAM. [Suspect]
     Active Substance: ALPRAZOLAM
     Indication: DRUG ABUSE
     Dosage: UNKNOWN,UNKNOWN
     Route: 048
  2. HYDROCODONE [Suspect]
     Active Substance: HYDROCODONE
     Indication: DRUG ABUSE
     Dosage: UNKNOWN,UNKNOWN
     Route: 048
  3. DIPHENHYDRAMINE HYDROCHLORIDE 25 MG 479 [Suspect]
     Active Substance: DIPHENHYDRAMINE HYDROCHLORIDE
     Indication: DRUG ABUSE
     Dosage: UNKNOWN,UNKNOWN
     Route: 048
  4. ETHANOL [Suspect]
     Active Substance: ALCOHOL
     Indication: DRUG ABUSE
     Dosage: UNKNOWN,UNKNOWN
     Route: 048
  5. ACETAMINOPHEN 650MG ER 544 [Suspect]
     Active Substance: ACETAMINOPHEN
     Indication: DRUG ABUSE
     Dosage: UNKNOWN,UNKNOWN
     Route: 048
  6. OXYCODONE [Suspect]
     Active Substance: OXYCODONE
     Indication: DRUG ABUSE
     Dosage: UNKNOWN,UNKNOWN
     Route: 048

REACTIONS (1)
  - Death [Fatal]
